FAERS Safety Report 11990500 (Version 1)
Quarter: 2016Q1

REPORT INFORMATION
  Report Type: Spontaneous
  Country: TR (occurrence: TR)
  Receive Date: 20160202
  Receipt Date: 20160202
  Transmission Date: 20160526
  Serious: Yes (Hospitalization)
  Sender: FDA-Public Use
  Company Number: TR-PFIZER INC-2016011241

PATIENT
  Age: 32 Year
  Sex: Female

DRUGS (1)
  1. FENTANYL. [Suspect]
     Active Substance: FENTANYL
     Indication: ARTHRALGIA
     Dosage: THREE PATCHES OF FENTANYL 75 M/H
     Route: 062

REACTIONS (3)
  - Accidental overdose [Unknown]
  - Acute coronary syndrome [Unknown]
  - Intentional product misuse [Unknown]
